FAERS Safety Report 9158022 (Version 1)
Quarter: 2013Q1

REPORT INFORMATION
  Report Type: Spontaneous
  Country: US (occurrence: None)
  Receive Date: 20130212
  Receipt Date: 20130212
  Transmission Date: 20140127
  Serious: Yes (Hospitalization)
  Sender: FDA-Public Use
  Company Number: UCM201301-000008

PATIENT
  Age: 64 Year
  Sex: Female
  Weight: 77.2 kg

DRUGS (4)
  1. HYDROCHLOROTHIAZIDE [Suspect]
     Indication: PRODUCT USED FOR UNKNOWN INDICATION
  2. RANITIDINE [Suspect]
     Indication: PRODUCT USED FOR UNKNOWN INDICATION
  3. ESTRADIOL [Suspect]
     Indication: PRODUCT USED FOR UNKNOWN INDICATION
     Dosage: APPLIED ON MONDAYS
  4. ENJUVIA [Suspect]
     Indication: PRODUCT USED FOR UNKNOWN INDICATION
     Route: 048

REACTIONS (10)
  - Upper respiratory tract infection [None]
  - Urinary tract infection [None]
  - Leukocytosis [None]
  - Electrocardiogram T wave inversion [None]
  - Sinus tachycardia [None]
  - Influenza like illness [None]
  - Pharyngitis [None]
  - Rhinitis [None]
  - Ear congestion [None]
  - Pyrexia [None]
